FAERS Safety Report 11340562 (Version 1)
Quarter: 2015Q3

REPORT INFORMATION
  Report Type: Spontaneous
  Country: US (occurrence: None)
  Receive Date: 20150803
  Receipt Date: 20150803
  Transmission Date: 20151125
  Serious: Yes (Death)
  Sender: FDA-Public Use
  Company Number: None

PATIENT
  Age: 62 Year
  Sex: Male
  Weight: 77.57 kg

DRUGS (2)
  1. NAPROXEN 220 MG EQUATE/WALMART [Suspect]
     Active Substance: NAPROXEN
     Indication: BACK PAIN
     Dosage: TAKEN BY MOUTH
  2. NAPROXEN. [Concomitant]
     Active Substance: NAPROXEN

REACTIONS (3)
  - Cardiac arrest [None]
  - Acute myocardial infarction [None]
  - Sudden cardiac death [None]

NARRATIVE: CASE EVENT DATE: 20140402
